FAERS Safety Report 4610950-9 (Version None)
Quarter: 2005Q1

REPORT INFORMATION
  Report Type: 
  Country: None (occurrence: None)
  Receive Date: 20050303
  Receipt Date: 20041025
  Transmission Date: 20050727
  Serious: No
  Sender: FDA-Public Use
  Company Number: 702358

PATIENT
  Age: 42 Year
  Sex: Male
  Weight: 63.5036 kg

DRUGS (1)
  1. AMEVIVE [Suspect]
     Indication: PSORIASIS
     Dosage: 15 MG;QW;IM
     Route: 030
     Dates: start: 20040813

REACTIONS (3)
  - BACK PAIN [None]
  - COUGH [None]
  - PSORIASIS [None]
